FAERS Safety Report 5953952-2 (Version None)
Quarter: 2008Q4

REPORT INFORMATION
  Report Type: 
  Country: None (occurrence: None)
  Receive Date: 20081114
  Receipt Date: 20081031
  Transmission Date: 20090506
  Serious: Yes (Other)
  Sender: FDA-Public Use
  Company Number: DE-GENENTECH-269314

PATIENT
  Sex: Female

DRUGS (3)
  1. BEVACIZUMAB [Suspect]
     Indication: OVARIAN EPITHELIAL CANCER
     Dosage: 570 MG, Q3W
     Route: 042
     Dates: start: 20080724
  2. CARBOPLATIN [Suspect]
     Indication: OVARIAN EPITHELIAL CANCER
     Dosage: 800 MG, UNK
     Route: 042
     Dates: start: 20080724
  3. PACLITAXEL [Suspect]
     Indication: OVARIAN EPITHELIAL CANCER
     Dosage: 325.5 MG, UNK
     Route: 042
     Dates: start: 20080724

REACTIONS (1)
  - EXFOLIATIVE RASH [None]
